FAERS Safety Report 10516397 (Version 1)
Quarter: 2014Q4

REPORT INFORMATION
  Report Type: Spontaneous
  Country: AU (occurrence: AU)
  Receive Date: 20141014
  Receipt Date: 20141014
  Transmission Date: 20150528
  Serious: Yes (Death)
  Sender: FDA-Public Use
  Company Number: AU-MYLANLABS-2014M1007149

PATIENT

DRUGS (7)
  1. METOCLOPRAMIDE. [Concomitant]
     Active Substance: METOCLOPRAMIDE
     Route: 065
  2. QUETIAPINE [Suspect]
     Active Substance: QUETIAPINE
     Route: 065
  3. DIAZEPAM. [Concomitant]
     Active Substance: DIAZEPAM
     Route: 065
  4. DULOXETINE [Suspect]
     Active Substance: DULOXETINE
     Route: 065
  5. OXYCODONE [Concomitant]
     Active Substance: OXYCODONE
     Route: 065
  6. AMITRIPTYLINE [Concomitant]
     Active Substance: AMITRIPTYLINE
     Route: 065
  7. CODEINE [Concomitant]
     Active Substance: CODEINE
     Route: 065

REACTIONS (2)
  - Cardiac disorder [Fatal]
  - Myocardial ischaemia [Fatal]
